FAERS Safety Report 8240006-8 (Version None)
Quarter: 2012Q1

REPORT INFORMATION
  Report Type: 
  Country: None (occurrence: None)
  Receive Date: 20120328
  Receipt Date: 20120328
  Transmission Date: 20120608
  Serious: Yes (Hospitalization)
  Sender: FDA-Public Use
  Company Number: ID-BAYER-200919775GPV

PATIENT
  Age: 70 Year
  Sex: Male
  Weight: 56.5 kg

DRUGS (10)
  1. AMLODIPINE [Concomitant]
     Indication: HYPERTENSION
     Dosage: DAILY DOSE 40 MG
     Route: 048
     Dates: start: 20090415, end: 20090503
  2. MOXIFLOXACIN [Suspect]
     Indication: BRONCHITIS
     Dosage: 400 MG, QD
     Route: 048
     Dates: start: 20090416, end: 20090422
  3. CODEINE SUL TAB [Concomitant]
     Indication: BRONCHITIS
     Dosage: DAILY DOSE 30 MG
     Route: 048
     Dates: start: 20090415, end: 20090506
  4. PRONEURON [Concomitant]
     Indication: ARTHRALGIA
     Dosage: DAILY DOSE 1500 MG
     Route: 048
     Dates: start: 20090415, end: 20090530
  5. VITAMIN B-COMPLEX WITH VITAMIN C [Concomitant]
     Indication: PRODUCT USED FOR UNKNOWN INDICATION
     Route: 048
     Dates: start: 20090428, end: 20090506
  6. POTIO NIGRA [Concomitant]
     Indication: BRONCHITIS
     Dosage: DAILY DOSE 30 ML
     Route: 048
     Dates: start: 20090415, end: 20090506
  7. PHARMATON [Concomitant]
     Indication: PRODUCT USED FOR UNKNOWN INDICATION
     Route: 048
     Dates: start: 20090415, end: 20090530
  8. ALDACTONE [Concomitant]
     Indication: HYPERTENSION
     Dosage: DAILY DOSE 25 MG
     Route: 048
     Dates: start: 20090415, end: 20090502
  9. SALBRON [Concomitant]
     Indication: BRONCHITIS
     Dosage: DAILY DOSE 3 MG
     Route: 048
     Dates: start: 20090415, end: 20090506
  10. AMINOPHYLLIN [Concomitant]
     Indication: BRONCHITIS
     Dosage: DAILY DOSE 250 MG
     Route: 048
     Dates: start: 20090415, end: 20090506

REACTIONS (2)
  - BRONCHITIS [None]
  - GASTRITIS [None]
